FAERS Safety Report 7212281-X (Version None)
Quarter: 2011Q1

REPORT INFORMATION
  Report Type: 
  Country: None (occurrence: None)
  Receive Date: 20110106
  Receipt Date: 20101227
  Transmission Date: 20110831
  Serious: Yes (Other)
  Sender: FDA-Public Use
  Company Number: PHHY2010NO78285

PATIENT
  Sex: Female

DRUGS (1)
  1. ACLASTA [Suspect]
     Indication: OSTEOPOROSIS
     Dosage: UNK
     Dates: start: 20101013

REACTIONS (9)
  - MUSCULAR WEAKNESS [None]
  - WEIGHT DECREASED [None]
  - HYPOAESTHESIA [None]
  - DECREASED APPETITE [None]
  - LIMB DISCOMFORT [None]
  - NAUSEA [None]
  - GASTROINTESTINAL DISORDER [None]
  - QUALITY OF LIFE DECREASED [None]
  - FATIGUE [None]
